FAERS Safety Report 4358840-3 (Version None)
Quarter: 2004Q2

REPORT INFORMATION
  Report Type: 
  Country: None (occurrence: None)
  Receive Date: 20040512
  Receipt Date: 20040504
  Transmission Date: 20050107
  Serious: Yes (Hospitalization)
  Sender: FDA-Public Use
  Company Number: 2004029803

PATIENT
  Age: 47 Year
  Sex: Male

DRUGS (4)
  1. ATARAX [Suspect]
     Indication: ECZEMA
     Dosage: 75 MG (DAILY), ORAL
     Route: 048
     Dates: start: 20040301, end: 20040311
  2. INDOMETHACIN [Suspect]
     Indication: PSORIASIS
     Dosage: 75 MG (DAILY), ORAL
     Route: 048
     Dates: start: 20040304, end: 20040305
  3. CLOXACILLIN SODIUM [Suspect]
     Indication: ILL-DEFINED DISORDER
     Dosage: 3 GRAM (DAILY), INTRAVENOUS
     Route: 042
     Dates: start: 20040301, end: 20040311
  4. OMPERAZOLE (OMEPRAZOLE) [Suspect]
     Indication: ILL-DEFINED DISORDER
     Dosage: 20 MG (DAILY), ORAL
     Route: 048
     Dates: start: 20040301, end: 20040311

REACTIONS (1)
  - RENAL FAILURE CHRONIC [None]
